FAERS Safety Report 11606694 (Version 1)
Quarter: 2015Q3

REPORT INFORMATION
  Report Type: Spontaneous
  Country: US (occurrence: US)
  Receive Date: 20150916
  Receipt Date: 20150916
  Transmission Date: 20151125
  Serious: No
  Sender: FDA-Public Use
  Company Number: US-ELI_LILLY_AND_COMPANY-US201402001340

PATIENT
  Age: 66 Year
  Sex: Female

DRUGS (5)
  1. ASPARTAME [Suspect]
     Active Substance: ASPARTAME
     Indication: PRODUCT USED FOR UNKNOWN INDICATION
     Route: 065
  2. LANTUS [Concomitant]
     Active Substance: INSULIN GLARGINE
     Dosage: 25 U, UNK
  3. HUMALOG [Suspect]
     Active Substance: INSULIN LISPRO
     Indication: TYPE 2 DIABETES MELLITUS
     Dosage: 5 OR 6 U, WITH EACH MEAL
     Route: 065
     Dates: start: 20131218, end: 20140121
  4. HUMALOG [Suspect]
     Active Substance: INSULIN LISPRO
     Dosage: 5 OR 6 U, WITH EACH MEAL
     Route: 065
     Dates: start: 20140129, end: 20140202
  5. GLIMEPIRIDE. [Concomitant]
     Active Substance: GLIMEPIRIDE

REACTIONS (6)
  - Malaise [Unknown]
  - Hypoglycaemia [Recovering/Resolving]
  - Palpitations [Unknown]
  - Nausea [Unknown]
  - Feeling abnormal [Unknown]
  - Glycosylated haemoglobin increased [Unknown]

NARRATIVE: CASE EVENT DATE: 201312
